FAERS Safety Report 7818107-5 (Version None)
Quarter: 2011Q4

REPORT INFORMATION
  Report Type: 
  Country: None (occurrence: None)
  Receive Date: 20111017
  Receipt Date: 20111003
  Transmission Date: 20120403
  Serious: Yes (Other)
  Sender: FDA-Public Use
  Company Number: FR-ROCHE-1001820

PATIENT
  Sex: Male

DRUGS (8)
  1. CYCLOPHOSPHAMIDE [Suspect]
     Indication: CHRONIC LYMPHOCYTIC LEUKAEMIA
     Route: 002
     Dates: start: 20110615, end: 20110617
  2. ZOPICLONE [Concomitant]
     Dates: start: 19800101
  3. VALACYCLOVIR HYDROCHLORIDE [Concomitant]
     Route: 002
     Dates: start: 20110321
  4. MABTHERA [Suspect]
     Indication: CHRONIC LYMPHOCYTIC LEUKAEMIA
     Route: 041
     Dates: start: 20110615, end: 20110615
  5. GAVISCON (FRANCE) [Concomitant]
     Dates: start: 19950101
  6. METHOTREXATE [Concomitant]
     Dates: start: 20110321
  7. BACTRIM [Concomitant]
     Dosage: 400 MG DCI1 AND 80 MG DCI2
     Route: 002
     Dates: start: 20110321
  8. FLUDARABINE PHOSPHATE [Suspect]
     Indication: CHRONIC LYMPHOCYTIC LEUKAEMIA
     Route: 002
     Dates: start: 20110615, end: 20110617

REACTIONS (1)
  - BASAL CELL CARCINOMA [None]
